FAERS Safety Report 7572037-5 (Version None)
Quarter: 2011Q2

REPORT INFORMATION
  Report Type: 
  Country: None (occurrence: None)
  Receive Date: 20110624
  Receipt Date: 20110620
  Transmission Date: 20111010
  Serious: Yes (Other)
  Sender: FDA-Public Use
  Company Number: US-ABBOTT-11P-163-0733860-00

PATIENT
  Sex: Male
  Weight: 83.99 kg

DRUGS (6)
  1. FOLIC ACID [Concomitant]
     Indication: RHEUMATOID ARTHRITIS
  2. TRAMADOL HCL [Concomitant]
     Indication: PAIN
  3. METHOTREXATE [Concomitant]
     Indication: RHEUMATOID ARTHRITIS
  4. OMEPRAZOLE [Concomitant]
     Indication: ABDOMINAL DISCOMFORT
  5. PREDNISONE [Concomitant]
     Indication: RHEUMATOID ARTHRITIS
  6. HUMIRA [Suspect]
     Indication: RHEUMATOID ARTHRITIS
     Dates: start: 20100101, end: 20110501

REACTIONS (2)
  - WOUND COMPLICATION [None]
  - OPEN WOUND [None]
